FAERS Safety Report 12462045 (Version 3)
Quarter: 2022Q1

REPORT INFORMATION
  Report Type: Spontaneous
  Country: US (occurrence: US)
  Receive Date: 20160613
  Receipt Date: 20220121
  Transmission Date: 20220423
  Serious: Yes (Hospitalization, Other)
  Sender: FDA-Public Use
  Company Number: US-ALLERGAN-1659739US

PATIENT
  Sex: Male
  Weight: 113.02 kg

DRUGS (8)
  1. NORCO [Suspect]
     Active Substance: ACETAMINOPHEN\HYDROCODONE BITARTRATE
     Indication: Pain
     Dosage: 1 DF, PRN,  INTERMITTENTLY EVERY 6 HOURS
     Route: 048
     Dates: start: 20151221, end: 20160411
  2. IBRUTINIB [Suspect]
     Active Substance: IBRUTINIB
     Indication: Mantle cell lymphoma refractory
     Dosage: 560 MG, QD, 28 DAYS CYCLE
     Route: 048
     Dates: start: 20160202, end: 20160329
  3. PALBOCICLIB [Suspect]
     Active Substance: PALBOCICLIB
     Indication: Mantle cell lymphoma refractory
     Dosage: 100 MG, QD ON DAYS 1-21 (28 DAYS CYCLE)
     Route: 048
     Dates: start: 20160202, end: 20160323
  4. ONDANSETRON [Concomitant]
     Active Substance: ONDANSETRON
     Indication: Nausea
     Dosage: UNK
     Route: 048
     Dates: start: 20160202
  5. IOHEXOL [Concomitant]
     Active Substance: IOHEXOL
     Dosage: CONTRAST MEDIUM
     Route: 048
     Dates: start: 20160404, end: 20160404
  6. FLUDEOXYGLUCOSE F-18 [Concomitant]
     Active Substance: FLUDEOXYGLUCOSE F-18
     Dosage: CONTRAST MEDIUM
     Dates: start: 20160404, end: 20160404
  7. TYLENOL WITH CODEINE [Concomitant]
     Active Substance: ACETAMINOPHEN\CODEINE PHOSPHATE
     Indication: Arthralgia
     Dosage: 60 MG/300 MG PER TABLET, INTERMITTENTLY AS NEEDED
     Dates: start: 20150420, end: 20160301
  8. VITAMINS [Concomitant]
     Active Substance: VITAMINS
     Dosage: UNK
     Dates: start: 20130713

REACTIONS (7)
  - Alanine aminotransferase increased [Recovered/Resolved]
  - Blood bilirubin increased [Recovered/Resolved]
  - Aspartate aminotransferase increased [Recovered/Resolved]
  - Mantle cell lymphoma [Unknown]
  - Condition aggravated [Unknown]
  - Autoimmune hepatitis [Unknown]
  - Platelet count decreased [Recovered/Resolved]

NARRATIVE: CASE EVENT DATE: 20160101
